FAERS Safety Report 8474767 (Version 2)
Quarter: 2012Q4

REPORT INFORMATION
  Report Type: Report from Study
  Country: US (occurrence: US)
  Receive Date: 20120323
  Receipt Date: 20120921
  Transmission Date: 20130627
  Serious: Yes (Hospitalization)
  Sender: FDA-Public Use
  Company Number: US-ABBOTT-12P-163-0916044-00

PATIENT
  Age: 28 Year
  Sex: Female
  Weight: 85.8 kg

DRUGS (16)
  1. HUMIRA [Suspect]
     Indication: CROHN^S DISEASE
     Dosage: baseline
     Route: 058
     Dates: start: 20050504, end: 20050504
  2. HUMIRA [Suspect]
     Dosage: week 2
     Route: 058
  3. HUMIRA [Suspect]
     Route: 058
     Dates: end: 20090214
  4. FOLATE [Concomitant]
     Indication: VITAMIN SUPPLEMENTATION
     Dates: start: 2007
  5. ORTHO TRI CYCLEN [Concomitant]
     Indication: CONTRACEPTION
     Dosage: 1 pill QD
     Dates: start: 2005
  6. CIMZIA [Concomitant]
     Indication: CROHN^S DISEASE
     Dates: start: 20090213, end: 20090430
  7. CIMZIA [Concomitant]
     Dates: start: 20090430
  8. PREDNISONE [Concomitant]
     Indication: ERYTHEMA NODOSUM
     Dates: start: 20090420
  9. PREDNISONE [Concomitant]
     Indication: CROHN^S DISEASE
  10. METHOTREXATE [Concomitant]
     Indication: CROHN^S DISEASE
     Dates: start: 2004
  11. SULFASALAZINE [Concomitant]
     Indication: CROHN^S DISEASE
     Dates: start: 2007
  12. SULFASALAZINE [Concomitant]
  13. FLAGYL [Concomitant]
     Indication: CROHN^S DISEASE
     Dates: start: 2007
  14. FERTILITY INJECTIONS [Concomitant]
     Indication: INFERTILITY
     Route: 050
  15. PROGESTERONE [Concomitant]
     Indication: CERVIX DISORDER
     Route: 067
  16. ASPIRIN [Concomitant]
     Indication: PRODUCT USED FOR UNKNOWN INDICATION

REACTIONS (1)
  - Premature delivery [Unknown]
